FAERS Safety Report 20601724 (Version 3)
Quarter: 2022Q3

REPORT INFORMATION
  Report Type: Spontaneous
  Country: JP (occurrence: JP)
  Receive Date: 20220316
  Receipt Date: 20220715
  Transmission Date: 20221026
  Serious: No
  Sender: FDA-Public Use
  Company Number: JP-GLAXOSMITHKLINE-JP2022JPN044478

PATIENT

DRUGS (18)
  1. SOTROVIMAB [Suspect]
     Active Substance: SOTROVIMAB
     Indication: COVID-19
     Dosage: 500 MG, SINGLE
     Dates: start: 20220212
  2. VEKLURY [Suspect]
     Active Substance: REMDESIVIR
     Indication: COVID-19
     Dosage: 200 MG FOR THE FIRST DAY, 100 MG FOR THE SECOND AND THIRD DAY, DOSING NUMBER: 3
     Dates: start: 20220211, end: 20220213
  3. ATENOLOL [Concomitant]
     Active Substance: ATENOLOL
     Dosage: 25 MG, QD, AFTER DINNER, ACTUAL DAYS OF ADMINISTRATION: MON, WED, FRI
  4. BROTIZOLAM OD TABLETS SAWAI [Concomitant]
     Dosage: 0.25 MG, QD, BEFORE BEDTIME
  5. AZILVA TABLETS [Concomitant]
     Dosage: 20 MG, QD, AFTER BREAKFAST
  6. TRAZENTA TABLETS [Concomitant]
     Indication: Diabetes mellitus
     Dosage: 5 MG, QD, AFTER BREAKFAST
  7. RABEPRAZOLE NA TABLET [Concomitant]
     Dosage: 10 MG, QD, AFTER BREAKFAST
  8. ATORVASTATIN CALCIUM [Concomitant]
     Active Substance: ATORVASTATIN CALCIUM
     Dosage: 5 MG, QD, AFTER BREAKFAST
  9. CLOPIDOGREL BISULFATE [Concomitant]
     Active Substance: CLOPIDOGREL BISULFATE
     Dosage: 75 MG, QD, AFTER BREAKFAST
  10. VOGLIBOSE OD TABLET [Concomitant]
     Dosage: 0.3 MG, TID, RIGHT BEFORE BREAKFAST, LUNCH, AND DINNER
  11. PRECIPITATED CALCIUM CARBONATE TABLETS [Concomitant]
     Dosage: 250 MG, TID, AFTER BREAKFAST, LUNCH, AND DINNER
  12. LANTHANUM CARBONATE [Concomitant]
     Active Substance: LANTHANUM CARBONATE
     Dosage: 250 MG, TID, AFTER BREAKFAST, LUNCH, AND DINNER
  13. NALFURAFINE HYDROCHLORIDE OD [Concomitant]
     Dosage: 2.5 ?G, QD, BEFORE BEDTIME
  14. LIMAPROST ALFADEX TABLETS [Concomitant]
     Dosage: 5 ?G, TID, AFTER BREAKFAST, LUNCH, AND DINNER
  15. NIFEDIPINE CR TABLETS [Concomitant]
     Dosage: 40 MG, QD, AFTER DINNER
  16. EPALRESTAT [Concomitant]
     Active Substance: EPALRESTAT
     Dosage: 50 MG, TID, BEFORE BREAKFAST, LUNCH, AND DINNER
  17. EPALRESTAT [Concomitant]
     Active Substance: EPALRESTAT
     Dosage: 50 MG, TID, BEFORE BREAKFAST, LUNCH, AND DINNER
  18. PL COMBINATION GRANULE [Concomitant]
     Dosage: 1 G, TID, AFTER BREAKFAST, LUNCH, AND DINNER

REACTIONS (2)
  - Platelet count decreased [Recovered/Resolved]
  - White blood cell count decreased [Recovered/Resolved]

NARRATIVE: CASE EVENT DATE: 20220214
